FAERS Safety Report 24239116 (Version 3)
Quarter: 2025Q1

REPORT INFORMATION
  Report Type: Spontaneous
  Country: US (occurrence: US)
  Receive Date: 20240822
  Receipt Date: 20250227
  Transmission Date: 20250409
  Serious: No
  Sender: AVADEL CNS PHARMACEUTICALS, LLC
  Company Number: US-AVADEL CNS PHARMACEUTICALS, LLC-2024AVA01335

PATIENT
  Sex: Female

DRUGS (11)
  1. LUMRYZ [Suspect]
     Active Substance: SODIUM OXYBATE
     Indication: Narcolepsy
     Dosage: 7.5 G, ONCE NIGHTLY
     Route: 048
     Dates: start: 202406, end: 2024
  2. LUMRYZ [Suspect]
     Active Substance: SODIUM OXYBATE
     Dosage: 7.5 G, ONCE NIGHTLY
     Route: 048
     Dates: start: 2024, end: 2024
  3. LUMRYZ [Suspect]
     Active Substance: SODIUM OXYBATE
     Dosage: 7.5 G, ONCE NIGHTLY
     Route: 048
     Dates: start: 202409
  4. LUMRYZ [Suspect]
     Active Substance: SODIUM OXYBATE
     Indication: Narcolepsy
     Dosage: 9 G, ONCE NIGHTLY
     Route: 048
     Dates: start: 2024, end: 2024
  5. LUMRYZ [Suspect]
     Active Substance: SODIUM OXYBATE
     Dosage: 9 G, ONCE NIGHTLY
     Route: 048
     Dates: start: 2024, end: 2024
  6. LUMRYZ [Suspect]
     Active Substance: SODIUM OXYBATE
     Dosage: 9 G, ONCE NIGHTLY
     Route: 048
     Dates: start: 2024, end: 202409
  7. UNSPECIFIED INGREDIENT [Suspect]
     Active Substance: UNSPECIFIED INGREDIENT
     Indication: Thyroid disorder
     Dates: end: 2024
  8. UNSPECIFIED INGREDIENT [Suspect]
     Active Substance: UNSPECIFIED INGREDIENT
     Dates: start: 2024
  9. WAKIX [Concomitant]
     Active Substance: PITOLISANT HYDROCHLORIDE
     Dates: start: 2024
  10. CYMBALTA [Concomitant]
     Active Substance: DULOXETINE HYDROCHLORIDE
  11. CYMBALTA [Concomitant]
     Active Substance: DULOXETINE HYDROCHLORIDE

REACTIONS (13)
  - Poor quality sleep [Recovering/Resolving]
  - Heart rate increased [Unknown]
  - Insomnia [Not Recovered/Not Resolved]
  - Hyperthyroidism [Unknown]
  - Therapeutic response unexpected [Not Recovered/Not Resolved]
  - Arthralgia [Not Recovered/Not Resolved]
  - Nausea [Recovered/Resolved]
  - Anxiety [Recovering/Resolving]
  - Depression [Recovered/Resolved]
  - Disturbance in attention [Unknown]
  - Depressed mood [Unknown]
  - Weight decreased [Not Recovered/Not Resolved]
  - Unevaluable event [Recovered/Resolved]

NARRATIVE: CASE EVENT DATE: 20240101
